FAERS Safety Report 4588069-5 (Version None)
Quarter: 2005Q1

REPORT INFORMATION
  Report Type: 
  Country: None (occurrence: None)
  Receive Date: 20050216
  Receipt Date: 20050202
  Transmission Date: 20050727
  Serious: Yes (Hospitalization)
  Sender: FDA-Public Use
  Company Number: FR_050205751

PATIENT
  Age: 70 Year
  Sex: Female

DRUGS (4)
  1. ZYPREXA [Suspect]
     Dosage: 20 MG/1 DAY
     Route: 048
     Dates: end: 20040501
  2. XANAX                  (ALPRAZOLAM DUM) [Concomitant]
  3. IMOVANE          (ZOPICLONE) [Concomitant]
  4. SPIRONOLACTONE [Concomitant]

REACTIONS (13)
  - AGITATION [None]
  - ALANINE AMINOTRANSFERASE INCREASED [None]
  - ASPARTATE AMINOTRANSFERASE INCREASED [None]
  - BLOOD ALKALINE PHOSPHATASE INCREASED [None]
  - DYSPHAGIA [None]
  - EPILEPSY [None]
  - FALL [None]
  - GAMMA-GLUTAMYLTRANSFERASE INCREASED [None]
  - HYPOKALAEMIA [None]
  - HYPONATRAEMIA [None]
  - INFLAMMATION [None]
  - PNEUMONITIS [None]
  - SOMNOLENCE [None]
